FAERS Safety Report 16451438 (Version 1)
Quarter: 2019Q2

REPORT INFORMATION
  Report Type: Spontaneous
  Country: US (occurrence: US)
  Receive Date: 20190509
  Receipt Date: 20190509
  Transmission Date: 20190711
  Serious: Yes (Hospitalization)
  Sender: FDA-Public Use
  Company Number: None

PATIENT
  Sex: Male

DRUGS (8)
  1. NOVOLOG [Concomitant]
     Active Substance: INSULIN ASPART
  2. AURYXIA [Concomitant]
     Active Substance: TETRAFERRIC TRICITRATE DECAHYDRATE
  3. ALLOPURINOL. [Concomitant]
     Active Substance: ALLOPURINOL
  4. AMIODARONE [Concomitant]
     Active Substance: AMIODARONE
  5. VIT D [Concomitant]
     Active Substance: VITAMIN D NOS
  6. ATORVASTATIN [Concomitant]
     Active Substance: ATORVASTATIN
  7. ELIQUIS [Concomitant]
     Active Substance: APIXABAN
  8. SENSIPAR [Suspect]
     Active Substance: CINACALCET HYDROCHLORIDE
     Route: 048
     Dates: start: 20181114

REACTIONS (1)
  - Hospitalisation [None]
